FAERS Safety Report 17286071 (Version 1)
Quarter: 2020Q1

REPORT INFORMATION
  Report Type: Spontaneous
  Country: US (occurrence: US)
  Receive Date: 20200118
  Receipt Date: 20200118
  Transmission Date: 20200409
  Serious: Yes (Other)
  Sender: FDA-Public Use
  Company Number: US-AUROBINDO-AUR-APL-2020-002219

PATIENT
  Age: 41 Year
  Sex: Female

DRUGS (7)
  1. LORAZEPAM. [Suspect]
     Active Substance: LORAZEPAM
     Indication: DELIRIUM
     Dosage: 0.5 MILLIGRAM EVERY 4 HOURS
     Route: 065
  2. METHADONE [Suspect]
     Active Substance: METHADONE HYDROCHLORIDE
     Indication: NEURALGIA
     Dosage: 5 MILLIGRAM, TWO TIMES A DAY
     Route: 065
  3. OLANZAPINE. [Suspect]
     Active Substance: OLANZAPINE
     Indication: ANXIETY
     Dosage: 5 MILLIGRAM AT BED TIME
     Route: 065
  4. FENTANYL. [Suspect]
     Active Substance: FENTANYL
     Indication: NEURALGIA
     Dosage: 25 MICROGRAM PER HOUR
     Route: 062
  5. MORPHINE [Suspect]
     Active Substance: MORPHINE
     Indication: NEURALGIA
     Dosage: 15 MILLIGRAM, TWO TIMES A DAY
     Route: 048
  6. HYDROMORPHONE [Suspect]
     Active Substance: HYDROMORPHONE
     Indication: NEURALGIA
     Dosage: 0.3 MILLIGRAM EVERY 10 MINUTES
     Route: 042
  7. MORPHINE [Suspect]
     Active Substance: MORPHINE
     Dosage: 15 MILLIGRAM, DAILY
     Route: 048

REACTIONS (13)
  - Disturbance in attention [Unknown]
  - Hallucinations, mixed [Unknown]
  - Memory impairment [Unknown]
  - Impulsive behaviour [Unknown]
  - Panic reaction [Unknown]
  - Non-24-hour sleep-wake disorder [Unknown]
  - Constipation [Unknown]
  - Anxiety [Unknown]
  - Disorientation [Unknown]
  - Tearfulness [Unknown]
  - Restlessness [Unknown]
  - Drug ineffective [Unknown]
  - Delirium [Unknown]
